FAERS Safety Report 18946591 (Version 5)
Quarter: 2021Q2

REPORT INFORMATION
  Report Type: Spontaneous
  Country: JP (occurrence: JP)
  Receive Date: 20210226
  Receipt Date: 20210607
  Transmission Date: 20210717
  Serious: Yes (Hospitalization, Other)
  Sender: FDA-Public Use
  Company Number: JP-BAYER-2021-074071

PATIENT
  Age: 37 Year
  Sex: Female

DRUGS (3)
  1. MIRENA [Suspect]
     Active Substance: LEVONORGESTREL
     Dosage: 20 ?G/DAY, CONTINUALLY
     Route: 015
     Dates: start: 202002
  2. MIRENA [Suspect]
     Active Substance: LEVONORGESTREL
     Dosage: 20 ?G/DAY, CONTINUALLY
     Route: 015
  3. MIRENA [Suspect]
     Active Substance: LEVONORGESTREL
     Dosage: 20 ?G/DAY, CONTINUALLY
     Route: 015
     Dates: start: 202003

REACTIONS (6)
  - Haemorrhage in pregnancy [None]
  - Pregnancy [None]
  - Device expulsion [None]
  - Device dislocation [None]
  - Device use error [None]
  - Morning sickness [None]
